FAERS Safety Report 9019647 (Version 2)
Quarter: 2013Q3

REPORT INFORMATION
  Report Type: Report from Study
  Country: CA (occurrence: CA)
  Receive Date: 20130118
  Receipt Date: 20130827
  Transmission Date: 20140515
  Serious: Yes (Hospitalization, Other)
  Sender: FDA-Public Use
  Company Number: CA-ABBOTT-13P-028-1031399-00

PATIENT
  Age: 58 Year
  Sex: Male
  Weight: 86 kg

DRUGS (15)
  1. HUMIRA [Suspect]
     Indication: CROHN^S DISEASE
     Route: 058
     Dates: start: 20121205, end: 201306
  2. PREDNISONE [Concomitant]
     Indication: CROHN^S DISEASE
     Route: 048
     Dates: start: 201210
  3. NADOLOL [Concomitant]
     Indication: VARICOSE VEIN
     Dates: start: 200004
  4. ERGOCALCIFEROL [Concomitant]
     Indication: PRODUCT USED FOR UNKNOWN INDICATION
     Route: 048
     Dates: start: 200504
  5. TECTA [Concomitant]
     Indication: GASTROOESOPHAGEAL REFLUX DISEASE
     Route: 048
     Dates: start: 201008
  6. URSODIOL [Concomitant]
     Indication: CHOLESTASIS
     Route: 048
     Dates: start: 200309
  7. AZATHOPRINE [Concomitant]
     Indication: PRODUCT USED FOR UNKNOWN INDICATION
  8. VIT C [Concomitant]
     Indication: ANAEMIA
     Route: 048
     Dates: start: 2012
  9. OMEGA 3 [Concomitant]
     Indication: PRODUCT USED FOR UNKNOWN INDICATION
     Route: 048
     Dates: start: 200306
  10. FERROUS FUMARATE [Concomitant]
     Indication: ANAEMIA
     Route: 048
     Dates: start: 2012
  11. ALENDRONATE [Concomitant]
     Indication: OSTEOPOROSIS
     Route: 048
     Dates: start: 200804
  12. HYDROMORPHONE [Concomitant]
     Indication: PAIN
     Route: 048
     Dates: start: 20121230
  13. AMOXICILLIN/CLAVULANIC ACID [Concomitant]
     Indication: DYSPEPSIA
     Route: 048
     Dates: start: 20121206
  14. FLUCONAZOLE [Concomitant]
     Indication: DYSPEPSIA
     Route: 048
     Dates: start: 20121226
  15. IMURAN [Concomitant]
     Indication: CROHN^S DISEASE
     Route: 048
     Dates: start: 200903

REACTIONS (4)
  - Cholecystitis acute [Not Recovered/Not Resolved]
  - Cholelithiasis [Unknown]
  - Cholecystitis infective [Unknown]
  - Cholecystectomy [Unknown]
